FAERS Safety Report 23653269 (Version 3)
Quarter: 2025Q3

REPORT INFORMATION
  Report Type: Report from Study
  Country: KR (occurrence: KR)
  Receive Date: 20240320
  Receipt Date: 20250702
  Transmission Date: 20251020
  Serious: Yes (Hospitalization)
  Sender: PFIZER
  Company Number: KR-PFIZER INC-PV202400033318

PATIENT
  Age: 69 Year
  Sex: Female
  Weight: 53.5 kg

DRUGS (18)
  1. LORLATINIB [Suspect]
     Active Substance: LORLATINIB
     Indication: Non-small cell lung cancer
     Dosage: 100 MG, 1X/DAY (QD)
     Route: 048
     Dates: start: 20240307, end: 20240310
  2. ELIQUIS [Concomitant]
     Active Substance: APIXABAN
     Indication: Pulmonary embolism
     Dosage: 5 MG, 2X/DAY (BID)
     Route: 048
     Dates: start: 20240306, end: 20240315
  3. CEFUROXIME [Concomitant]
     Active Substance: CEFUROXIME
     Indication: Pleural effusion
     Dosage: 40 MG, 2X/DAY (BID)
     Route: 048
     Dates: start: 20230821, end: 20240315
  4. CEFUROXIME [Concomitant]
     Active Substance: CEFUROXIME
     Indication: Pericardial effusion
  5. TRESTAN [CYANOCOBALAMIN] [Concomitant]
     Indication: Prophylaxis
     Dosage: 100 MG, 3X/DAY (TID)
     Route: 048
     Dates: start: 20230619, end: 20240315
  6. SURFOLASE [Concomitant]
     Indication: Non-small cell lung cancer
     Dosage: 100 MG, 2X/DAY (BID)
     Route: 048
     Dates: start: 20231211, end: 20240315
  7. PARAMACET ER [Concomitant]
     Indication: Pain management
     Route: 048
     Dates: start: 20240309, end: 20240315
  8. AXID [NIZATIDINE] [Concomitant]
     Indication: Prophylaxis
     Dosage: 150 MG, 1X/DAY
     Route: 048
     Dates: start: 20230626, end: 20240315
  9. EPILATAM [Concomitant]
     Indication: Seizure prophylaxis
     Dosage: 500 MG, 2X/DAY
     Route: 048
     Dates: start: 20230626, end: 20240315
  10. ZALTOPROFEN [Concomitant]
     Active Substance: ZALTOPROFEN
     Indication: Pain management
     Dosage: 80 MG, 3X/DAY
     Route: 048
     Dates: start: 20231227, end: 20240315
  11. COLCHICINE [Concomitant]
     Active Substance: COLCHICINE
     Indication: Gout
     Dosage: 0.6 MG, 1X/DAY
     Route: 048
     Dates: start: 20231227, end: 20240315
  12. ISOTRETINOIN [Concomitant]
     Active Substance: ISOTRETINOIN
     Indication: Pericardial operation
     Dosage: 12.5 MG, 1X/DAY
     Route: 048
     Dates: start: 20230626, end: 20240315
  13. ISOTRETINOIN [Concomitant]
     Active Substance: ISOTRETINOIN
     Indication: Pulmonary embolism
  14. CALCIUM CARBONATE\CHOLECALCIFEROL [Concomitant]
     Active Substance: CALCIUM CARBONATE\CHOLECALCIFEROL
     Indication: Osteoporosis
     Dosage: 250 MG, 1X/DAY
     Route: 048
     Dates: start: 20231215, end: 20240315
  15. GODEX [ADENINE HYDROCHLORIDE;CARNITINE OROTATE;CYANOCOBALAMIN;LIVER;PY [Concomitant]
     Indication: Prophylaxis
     Dosage: 50 MG, 3X/DAY
     Route: 048
     Dates: start: 20231215, end: 20240315
  16. TEGOPRAZAN [Concomitant]
     Active Substance: TEGOPRAZAN
     Indication: Prophylaxis
     Dosage: 50 MG, 1X/DAY, ODT
     Route: 048
     Dates: start: 20231216, end: 20240315
  17. EZTIROL [Concomitant]
     Indication: Hyperlipidaemia
     Dosage: 10 MG, 1X/DAY
     Route: 048
     Dates: start: 20231213, end: 20240315
  18. CRESTOR [Concomitant]
     Active Substance: ROSUVASTATIN CALCIUM
     Indication: Hyperlipidaemia
     Dosage: 5 MG, 1X/DAY
     Route: 048
     Dates: start: 20231213, end: 20240315

REACTIONS (1)
  - Cognitive disorder [Not Recovered/Not Resolved]

NARRATIVE: CASE EVENT DATE: 20240310
